FAERS Safety Report 5599818-1 (Version None)
Quarter: 2008Q1

REPORT INFORMATION
  Report Type: 
  Country: None (occurrence: None)
  Receive Date: 20080123
  Receipt Date: 20071128
  Transmission Date: 20080703
  Serious: Yes (Hospitalization, Other)
  Sender: FDA-Public Use
  Company Number: US-BAYER-200714914NA

PATIENT
  Age: 59 Year
  Sex: Female

DRUGS (2)
  1. BETASERON [Suspect]
     Indication: SECONDARY PROGRESSIVE MULTIPLE SCLEROSIS
     Route: 058
     Dates: start: 20070720, end: 20071107
  2. BETASERON [Suspect]
     Dosage: TOTAL DAILY DOSE: 4 MIU
     Route: 058
     Dates: start: 20071107

REACTIONS (6)
  - BLOOD POTASSIUM DECREASED [None]
  - DEHYDRATION [None]
  - THYROID CYST [None]
  - THYROID NEOPLASM [None]
  - VOMITING [None]
  - WEIGHT DECREASED [None]
